FAERS Safety Report 12854545 (Version 1)
Quarter: 2016Q4

REPORT INFORMATION
  Report Type: Spontaneous
  Country: US (occurrence: US)
  Receive Date: 20161017
  Receipt Date: 20161017
  Transmission Date: 20170207
  Serious: No
  Sender: FDA-Public Use
  Company Number: US-GUERBET LLC-1058430

PATIENT
  Age: 45 Year
  Sex: Female

DRUGS (1)
  1. OPTIRAY PBP [Suspect]
     Active Substance: IOVERSOL
     Indication: COMPUTERISED TOMOGRAM ABDOMEN
     Route: 042
     Dates: start: 20160706, end: 20160706

REACTIONS (2)
  - Pruritus [Recovered/Resolved]
  - Urticaria [Recovered/Resolved]

NARRATIVE: CASE EVENT DATE: 20160706
